FAERS Safety Report 23746698 (Version 2)
Quarter: 2024Q2

REPORT INFORMATION
  Report Type: Spontaneous
  Country: US (occurrence: US)
  Receive Date: 20240416
  Receipt Date: 20240507
  Transmission Date: 20240716
  Serious: Yes (Other)
  Sender: FDA-Public Use
  Company Number: US-AUROBINDO-AUR-APL-2024-017029

PATIENT
  Sex: Male

DRUGS (30)
  1. CLONAZEPAM [Suspect]
     Active Substance: CLONAZEPAM
     Indication: Partial seizures with secondary generalisation
     Dosage: UNK
     Route: 065
  2. CLONAZEPAM [Suspect]
     Active Substance: CLONAZEPAM
     Indication: Partial seizures
  3. CLONAZEPAM [Suspect]
     Active Substance: CLONAZEPAM
     Indication: Focal dyscognitive seizures
  4. GABAPENTIN [Suspect]
     Active Substance: GABAPENTIN
     Indication: Partial seizures with secondary generalisation
     Dosage: UNK
     Route: 065
  5. GABAPENTIN [Suspect]
     Active Substance: GABAPENTIN
     Indication: Partial seizures
  6. GABAPENTIN [Suspect]
     Active Substance: GABAPENTIN
     Indication: Focal dyscognitive seizures
  7. LACOSAMIDE [Suspect]
     Active Substance: LACOSAMIDE
     Indication: Partial seizures with secondary generalisation
     Dosage: UNK
     Route: 065
  8. LACOSAMIDE [Suspect]
     Active Substance: LACOSAMIDE
     Indication: Partial seizures
  9. LACOSAMIDE [Suspect]
     Active Substance: LACOSAMIDE
     Indication: Focal dyscognitive seizures
  10. LAMOTRIGINE [Suspect]
     Active Substance: LAMOTRIGINE
     Indication: Partial seizures with secondary generalisation
     Dosage: UNK
     Route: 065
  11. LAMOTRIGINE [Suspect]
     Active Substance: LAMOTRIGINE
     Indication: Partial seizures
  12. LAMOTRIGINE [Suspect]
     Active Substance: LAMOTRIGINE
     Indication: Focal dyscognitive seizures
  13. PHENYTOIN [Suspect]
     Active Substance: PHENYTOIN
     Indication: Partial seizures with secondary generalisation
     Dosage: UNK
     Route: 065
  14. PHENYTOIN [Suspect]
     Active Substance: PHENYTOIN
     Indication: Focal dyscognitive seizures
  15. PHENYTOIN [Suspect]
     Active Substance: PHENYTOIN
     Indication: Partial seizures
  16. TOPIRAMATE [Suspect]
     Active Substance: TOPIRAMATE
     Indication: Partial seizures with secondary generalisation
     Dosage: UNK
     Route: 065
  17. TOPIRAMATE [Suspect]
     Active Substance: TOPIRAMATE
     Indication: Partial seizures
  18. TOPIRAMATE [Suspect]
     Active Substance: TOPIRAMATE
     Indication: Focal dyscognitive seizures
  19. CARBAMAZEPINE [Suspect]
     Active Substance: CARBAMAZEPINE
     Indication: Partial seizures with secondary generalisation
     Dosage: UNK
     Route: 065
  20. CARBAMAZEPINE [Suspect]
     Active Substance: CARBAMAZEPINE
     Indication: Focal dyscognitive seizures
  21. CARBAMAZEPINE [Suspect]
     Active Substance: CARBAMAZEPINE
     Indication: Partial seizures
  22. PHENOBARBITAL [Suspect]
     Active Substance: PHENOBARBITAL
     Indication: Partial seizures with secondary generalisation
     Dosage: UNK
     Route: 065
  23. PHENOBARBITAL [Suspect]
     Active Substance: PHENOBARBITAL
     Indication: Focal dyscognitive seizures
  24. PHENOBARBITAL [Suspect]
     Active Substance: PHENOBARBITAL
     Indication: Partial seizures
  25. PRIMIDONE [Suspect]
     Active Substance: PRIMIDONE
     Indication: Partial seizures with secondary generalisation
     Dosage: UNK
     Route: 065
  26. PRIMIDONE [Suspect]
     Active Substance: PRIMIDONE
     Indication: Focal dyscognitive seizures
  27. PRIMIDONE [Suspect]
     Active Substance: PRIMIDONE
     Indication: Partial seizures
  28. VALPROIC ACID [Suspect]
     Active Substance: VALPROIC ACID
     Indication: Partial seizures with secondary generalisation
     Dosage: UNK
     Route: 065
  29. VALPROIC ACID [Suspect]
     Active Substance: VALPROIC ACID
     Indication: Partial seizures
  30. VALPROIC ACID [Suspect]
     Active Substance: VALPROIC ACID
     Indication: Focal dyscognitive seizures

REACTIONS (1)
  - Drug ineffective [Unknown]
